FAERS Safety Report 6754066-4 (Version None)
Quarter: 2010Q2

REPORT INFORMATION
  Report Type: 
  Country: None (occurrence: None)
  Receive Date: 20100601
  Receipt Date: 20100517
  Transmission Date: 20101027
  Serious: Yes (Hospitalization)
  Sender: FDA-Public Use
  Company Number: IPC201005-000139

PATIENT
  Sex: Male

DRUGS (3)
  1. ATENOLOL [Suspect]
     Indication: MYOCARDIAL INFARCTION
     Dosage: 50 MG, 1 IN 1 D, ORAL ; 50 MG, 1 IN 1 D, ORAL ; HALF TABLET PER DAY, ORAL
     Route: 048
     Dates: start: 20100508, end: 20100513
  2. ATENOLOL [Suspect]
     Indication: MYOCARDIAL INFARCTION
     Dosage: 50 MG, 1 IN 1 D, ORAL ; 50 MG, 1 IN 1 D, ORAL ; HALF TABLET PER DAY, ORAL
     Route: 048
     Dates: start: 20100514, end: 20100516
  3. ATENOLOL [Suspect]
     Indication: MYOCARDIAL INFARCTION
     Dosage: 50 MG, 1 IN 1 D, ORAL ; 50 MG, 1 IN 1 D, ORAL ; HALF TABLET PER DAY, ORAL
     Route: 048

REACTIONS (9)
  - ANXIETY [None]
  - BLOOD PRESSURE INCREASED [None]
  - BRADYCARDIA [None]
  - CHEST PAIN [None]
  - MALAISE [None]
  - PRODUCT MEASURED POTENCY ISSUE [None]
  - PRODUCT QUALITY ISSUE [None]
  - PRODUCT SUBSTITUTION ISSUE [None]
  - SLEEP DISORDER [None]
